FAERS Safety Report 7801596-X (Version None)
Quarter: 2011Q4

REPORT INFORMATION
  Report Type: 
  Country: None (occurrence: None)
  Receive Date: 20111006
  Receipt Date: 20111006
  Transmission Date: 20120403
  Serious: Yes (Hospitalization)
  Sender: FDA-Public Use
  Company Number: None

PATIENT
  Age: 79 Year
  Sex: Male
  Weight: 79 kg

DRUGS (10)
  1. PREDNISONE [Concomitant]
  2. DIGOXIN [Suspect]
     Indication: ATRIAL FIBRILLATION
     Dosage: 0.37MG DAILY PO CHRONIC
     Route: 048
  3. METFORMIN HYDROCHLORIDE [Concomitant]
  4. FOSINOPRIL SODIUM [Concomitant]
  5. MOM [Concomitant]
  6. FISH OIL [Concomitant]
  7. WARFARIN SODIUM [Concomitant]
  8. LANTUS [Concomitant]
  9. ORTERONEL [Concomitant]
  10. MIRTAZAPINE [Concomitant]

REACTIONS (5)
  - CARDIOACTIVE DRUG LEVEL ABOVE THERAPEUTIC [None]
  - TOXICITY TO VARIOUS AGENTS [None]
  - DYSPNOEA EXERTIONAL [None]
  - ASTHENIA [None]
  - RENAL FAILURE ACUTE [None]
